FAERS Safety Report 21613995 (Version 1)
Quarter: 2022Q4

REPORT INFORMATION
  Report Type: Spontaneous
  Country: US (occurrence: US)
  Receive Date: 20221118
  Receipt Date: 20221118
  Transmission Date: 20230113
  Serious: Yes (Hospitalization)
  Sender: FDA-Public Use
  Company Number: US-CSLP-42410777548-V00G80TA-42

PATIENT
  Age: 25 Year
  Sex: Female

DRUGS (1)
  1. ANTICOAGULANT SODIUM CITRATE [Suspect]
     Active Substance: SODIUM CITRATE
     Indication: Anticoagulant therapy
     Route: 050
     Dates: start: 20221108, end: 20221108

REACTIONS (11)
  - Hypoaesthesia [Unknown]
  - Hypoacusis [Recovered/Resolved]
  - Dyskinesia [Unknown]
  - Tachypnoea [Unknown]
  - Nausea [Unknown]
  - Anxiety [Unknown]
  - Dyspnoea [Unknown]
  - Visual impairment [Recovered/Resolved]
  - Paraesthesia [Unknown]
  - Muscle twitching [Unknown]
  - Disorientation [Unknown]

NARRATIVE: CASE EVENT DATE: 20221108
